FAERS Safety Report 10142614 (Version 2)
Quarter: 2014Q3

REPORT INFORMATION
  Report Type: Spontaneous
  Country: IT (occurrence: None)
  Receive Date: 20140425
  Receipt Date: 20140721
  Transmission Date: 20150326
  Serious: Yes (Life-Threatening)
  Sender: FDA-Public Use
  Company Number: AUR-APL-2014-04756

PATIENT
  Age: 51 Year
  Sex: Male
  Weight: 80 kg

DRUGS (5)
  1. ETILTOX (DISULFIRAM) TABLET [Suspect]
     Active Substance: DISULFIRAM
     Indication: PRODUCT USED FOR UNKNOWN INDICATION
     Dosage: 10 DF, TOTAL, ORAL
     Route: 048
     Dates: start: 20140330, end: 20140330
  2. SEROQUEL [Suspect]
     Active Substance: QUETIAPINE FUMARATE
     Indication: PRODUCT USED FOR UNKNOWN INDICATION
     Dosage: 170 DF, TOTAL, ORAL
     Route: 048
     Dates: start: 20140330, end: 20140330
  3. DELORAZEPAM [Suspect]
     Active Substance: DELORAZEPAM
     Indication: PRODUCT USED FOR UNKNOWN INDICATION
     Dosage: 80 MG, TOTAL, ORAL
     Route: 048
     Dates: start: 20140330, end: 20140330
  4. CARBOLITHIUM [Suspect]
     Active Substance: LITHIUM CARBONATE
     Indication: PRODUCT USED FOR UNKNOWN INDICATION
     Dosage: 80 DF, TOTAL, ORAL
     Route: 048
     Dates: start: 20140330, end: 20140330
  5. PAROXETINA AUROBINDO 20MG COMPRESSE RIVESTITE CON FILM(PAROXETINE) FILM-COATED TABLET, 20MG [Suspect]
     Active Substance: PAROXETINE\PAROXETINE HYDROCHLORIDE
     Indication: PRODUCT USED FOR UNKNOWN INDICATION
     Dosage: 140 MG, TOTAL, ORAL
     Route: 048
     Dates: start: 20140330, end: 20140330

REACTIONS (4)
  - Intentional self-injury [None]
  - Drug abuse [None]
  - Coma [None]
  - Respiratory failure [None]

NARRATIVE: CASE EVENT DATE: 20140330
